FAERS Safety Report 8484422-8 (Version None)
Quarter: 2012Q3

REPORT INFORMATION
  Report Type: 
  Country: None (occurrence: None)
  Receive Date: 20120703
  Receipt Date: 20120629
  Transmission Date: 20120928
  Serious: Yes (Hospitalization)
  Sender: FDA-Public Use
  Company Number: PHHY2012PT054674

PATIENT
  Age: 7 Year
  Sex: Male

DRUGS (1)
  1. CARBAMAZEPINE [Suspect]
     Indication: EPILEPSY

REACTIONS (15)
  - PYREXIA [None]
  - LUNG INFILTRATION [None]
  - ASTHENIA [None]
  - HYPOGAMMAGLOBULINAEMIA [None]
  - EXERCISE TOLERANCE DECREASED [None]
  - TOTAL LUNG CAPACITY DECREASED [None]
  - DYSPNOEA [None]
  - WHEEZING [None]
  - DRUG HYPERSENSITIVITY [None]
  - INTERSTITIAL LUNG DISEASE [None]
  - COUGH [None]
  - HYPOXIA [None]
  - CREPITATIONS [None]
  - RESPIRATORY DISTRESS [None]
  - BRONCHIECTASIS [None]
